FAERS Safety Report 5383190-6 (Version None)
Quarter: 2007Q3

REPORT INFORMATION
  Report Type: 
  Country: None (occurrence: None)
  Receive Date: 20070705
  Receipt Date: 20070619
  Transmission Date: 20080115
  Serious: Yes (Life-Threatening)
  Sender: FDA-Public Use
  Company Number: 2007US001456

PATIENT
  Age: 23 Year
  Sex: Female

DRUGS (2)
  1. AMBISOME [Suspect]
     Indication: ASPERGILLOSIS
     Dosage: 60 MG, UID/QD, IV DRIP
     Route: 041
     Dates: start: 20070520
  2. VFEND [Concomitant]

REACTIONS (1)
  - ELECTROCARDIOGRAM QT PROLONGED [None]
